FAERS Safety Report 18654865 (Version 2)
Quarter: 2021Q1

REPORT INFORMATION
  Report Type: Report from Study
  Country: BR (occurrence: BR)
  Receive Date: 20201223
  Receipt Date: 20210209
  Transmission Date: 20210419
  Serious: Yes (Life-Threatening, Other)
  Sender: FDA-Public Use
  Company Number: NVSC2020BR340622

PATIENT
  Age: 56 Year
  Sex: Female

DRUGS (1)
  1. ENTRESTO [Suspect]
     Active Substance: SACUBITRIL\VALSARTAN
     Indication: CARDIAC FAILURE
     Dosage: 0.5 DF, Q12H (AROUND TWO YEARS AGO)
     Route: 065

REACTIONS (9)
  - Cardiomegaly [Unknown]
  - Heart rate decreased [Unknown]
  - Wrong technique in product usage process [Unknown]
  - Akinesia [Unknown]
  - Left ventricular hypertrophy [Unknown]
  - Visual impairment [Unknown]
  - Hypokinesia [Unknown]
  - Hypertrophic cardiomyopathy [Not Recovered/Not Resolved]
  - Near death experience [Unknown]

NARRATIVE: CASE EVENT DATE: 20210201
